FAERS Safety Report 16797140 (Version 1)
Quarter: 2019Q3

REPORT INFORMATION
  Report Type: Spontaneous
  Country: JP (occurrence: JP)
  Receive Date: 20190911
  Receipt Date: 20190911
  Transmission Date: 20191005
  Serious: Yes (Other)
  Sender: FDA-Public Use
  Company Number: JP-AMGEN-JPNSP2019149906

PATIENT
  Age: 8 Decade
  Sex: Male

DRUGS (2)
  1. VECTIBIX [Suspect]
     Active Substance: PANITUMUMAB
     Indication: COLON CANCER
     Dosage: UNK
     Route: 042
  2. VECTIBIX [Suspect]
     Active Substance: PANITUMUMAB
     Dosage: UNK
     Route: 042

REACTIONS (6)
  - Chest pain [Recovered/Resolved]
  - Paronychia [Recovered/Resolved]
  - Pyrexia [Recovered/Resolved]
  - Neutrophil count decreased [Recovered/Resolved]
  - Dermatitis acneiform [Recovered/Resolved]
  - Hypomagnesaemia [Recovered/Resolved]
